FAERS Safety Report 9254578 (Version 1)
Quarter: 2013Q2

REPORT INFORMATION
  Report Type: Spontaneous
  Country: US (occurrence: US)
  Receive Date: 20130425
  Receipt Date: 20130425
  Transmission Date: 20140414
  Serious: Yes (Other)
  Sender: FDA-Public Use
  Company Number: US-PFIZER INC-2013125380

PATIENT
  Age: 58 Year
  Sex: Male
  Weight: 66.67 kg

DRUGS (1)
  1. TYGACIL [Suspect]
     Dosage: 50 MG, 2X/DAY
     Dates: start: 20130418

REACTIONS (1)
  - Venous injury [Unknown]
